FAERS Safety Report 10895355 (Version 1)
Quarter: 2015Q1

REPORT INFORMATION
  Report Type: Spontaneous
  Country: US (occurrence: US)
  Receive Date: 20150306
  Receipt Date: 20150306
  Transmission Date: 20150721
  Serious: No
  Sender: FDA-Public Use
  Company Number: US-AMGEN-USASP2014039720

PATIENT
  Age: 60 Year
  Sex: Male

DRUGS (5)
  1. SODIUM BICARBONATE. [Concomitant]
     Active Substance: SODIUM BICARBONATE
  2. ATENOLOL. [Concomitant]
     Active Substance: ATENOLOL
  3. MIDODRINE [Concomitant]
     Active Substance: MIDODRINE
  4. RENVELA [Concomitant]
     Active Substance: SEVELAMER CARBONATE
  5. SENSIPAR [Suspect]
     Active Substance: CINACALCET HYDROCHLORIDE
     Indication: PRODUCT USED FOR UNKNOWN INDICATION
     Route: 065

REACTIONS (1)
  - Blood parathyroid hormone increased [Unknown]
